FAERS Safety Report 5881792-1 (Version None)
Quarter: 2008Q3

REPORT INFORMATION
  Report Type: 
  Country: None (occurrence: None)
  Receive Date: 20080912
  Receipt Date: 20080714
  Transmission Date: 20090109
  Serious: No
  Sender: FDA-Public Use
  Company Number: US-ABBOTT-08P-163-0462663-00

PATIENT
  Sex: Male

DRUGS (3)
  1. HUMIRA [Suspect]
     Indication: DRUG USE FOR UNKNOWN INDICATION
  2. HUMIRA [Suspect]
  3. UNSPECIFIED MEDICATIONS [Concomitant]
     Indication: DRUG USE FOR UNKNOWN INDICATION

REACTIONS (1)
  - PHOTOSENSITIVITY REACTION [None]
